FAERS Safety Report 19190389 (Version 1)
Quarter: 2021Q2

REPORT INFORMATION
  Report Type: Report from Study
  Country: FR (occurrence: FR)
  Receive Date: 20210428
  Receipt Date: 20210428
  Transmission Date: 20210717
  Serious: Yes (Hospitalization)
  Sender: FDA-Public Use
  Company Number: FR-JNJFOC-20210319514

PATIENT
  Age: 54 Year
  Sex: Male

DRUGS (8)
  1. SPRAVATO [Suspect]
     Active Substance: ESKETAMINE
  2. SPRAVATO [Suspect]
     Active Substance: ESKETAMINE
  3. THYROID T3 [Concomitant]
     Indication: POTENTIATING DRUG INTERACTION
     Dates: start: 20200302, end: 20200610
  4. PREGABALINE [Concomitant]
     Active Substance: PREGABALIN
     Dates: start: 20180911
  5. NARDIL [Concomitant]
     Active Substance: PHENELZINE SULFATE
     Indication: ANTIDEPRESSANT THERAPY
     Dates: start: 20200323, end: 20200917
  6. SELEGILINE [Concomitant]
     Active Substance: SELEGILINE
     Indication: ANTIDEPRESSANT THERAPY
     Dates: start: 20201022
  7. SPRAVATO [Suspect]
     Active Substance: ESKETAMINE
     Indication: DEPRESSION
     Dates: start: 20200429
  8. LITHIUM. [Concomitant]
     Active Substance: LITHIUM
     Indication: POTENTIATING DRUG INTERACTION
     Dates: start: 20200323

REACTIONS (1)
  - Drug ineffective [Recovered/Resolved]

NARRATIVE: CASE EVENT DATE: 20200903
